FAERS Safety Report 4322449-8 (Version None)
Quarter: 2004Q1

REPORT INFORMATION
  Report Type: 
  Country: None (occurrence: None)
  Receive Date: 20040319
  Receipt Date: 20040308
  Transmission Date: 20041129
  Serious: Yes (Other)
  Sender: FDA-Public Use
  Company Number: 2004-DE-01147GD (0)

PATIENT
  Age: 62 Year
  Sex: Female

DRUGS (2)
  1. CYCLOPHOSPHAMIDE [Suspect]
     Indication: RETROPERITONEAL FIBROSIS
     Dosage: SEE TEXT (NR),
  2. PREDNISONE [Suspect]
     Indication: RETROPERITONEAL FIBROSIS
     Dosage: 1 - 1.5 MG/KG/DAY FOR 3 WEEKS, THEN TAPERED UNTIL DISCONTINUATION WITHIN 6 MONTHS (NR), PO
     Route: 048

REACTIONS (1)
  - SEPSIS [None]
